FAERS Safety Report 7234301-9 (Version None)
Quarter: 2011Q1

REPORT INFORMATION
  Report Type: 
  Country: None (occurrence: None)
  Receive Date: 20110119
  Receipt Date: 20110112
  Transmission Date: 20110831
  Serious: Yes (Other)
  Sender: FDA-Public Use
  Company Number: US-PFIZER INC-2011008933

PATIENT
  Sex: Female

DRUGS (1)
  1. ROBITUSSIN [Suspect]
     Dosage: UNK

REACTIONS (4)
  - PERIPHERAL ARTERIAL OCCLUSIVE DISEASE [None]
  - CARDIAC DISORDER [None]
  - DEMENTIA [None]
  - CHRONIC OBSTRUCTIVE PULMONARY DISEASE [None]
